FAERS Safety Report 24843856 (Version 2)
Quarter: 2025Q1

REPORT INFORMATION
  Report Type: Report from Study
  Country: US (occurrence: US)
  Receive Date: 20250115
  Receipt Date: 20250219
  Transmission Date: 20250409
  Serious: Yes (Other)
  Sender: BAUSCH AND LOMB
  Company Number: US-BAUSCHBL-2025BNL000385

PATIENT
  Age: 73 Year
  Sex: Female

DRUGS (1)
  1. MIEBO [Suspect]
     Active Substance: PERFLUOROHEXYLOCTANE
     Indication: Dry eye
     Route: 047
     Dates: start: 20241224, end: 20250103

REACTIONS (8)
  - Blindness unilateral [Unknown]
  - Neurological symptom [Unknown]
  - Arthritis [Unknown]
  - Circumstance or information capable of leading to medication error [Unknown]
  - Product complaint [Unknown]
  - Product container issue [Unknown]
  - Product delivery mechanism issue [Unknown]
  - Product knowledge deficit [Unknown]
